FAERS Safety Report 12785579 (Version 2)
Quarter: 2016Q4

REPORT INFORMATION
  Report Type: Spontaneous
  Country: FR (occurrence: FR)
  Receive Date: 20160927
  Receipt Date: 20161020
  Transmission Date: 20170207
  Serious: No
  Sender: FDA-Public Use
  Company Number: FR-ELI_LILLY_AND_COMPANY-FR201609008503

PATIENT
  Age: 59 Year
  Sex: Male

DRUGS (2)
  1. CIALIS [Suspect]
     Active Substance: TADALAFIL
     Indication: ERECTILE DYSFUNCTION
     Dosage: 20 MG, UNKNOWN
     Route: 048
  2. CIALIS [Suspect]
     Active Substance: TADALAFIL
     Dosage: 10 MG, UNKNOWN
     Route: 048
     Dates: start: 2016

REACTIONS (4)
  - Diplopia [Recovered/Resolved]
  - Ocular discomfort [Recovered/Resolved]
  - Extraocular muscle disorder [Unknown]
  - Hot flush [Recovered/Resolved]
